FAERS Safety Report 8486675 (Version 5)
Quarter: 2012Q4

REPORT INFORMATION
  Report Type: Spontaneous
  Country: US (occurrence: None)
  Receive Date: 20120326
  Receipt Date: 20121001
  Transmission Date: 20130627
  Serious: Yes (Other)
  Sender: FDA-Public Use
  Company Number: ADR-2012-00584

PATIENT
  Sex: Female

DRUGS (2)
  1. LIORESAL [Suspect]
     Indication: MUSCLE SPASTICITY
  2. LIORESAL [Suspect]
     Indication: CEREBRAL PALSY

REACTIONS (10)
  - No therapeutic response [None]
  - Pump reservoir issue [None]
  - Musculoskeletal disorder [None]
  - Scoliosis [None]
  - General physical health deterioration [None]
  - Lung disorder [None]
  - Drug withdrawal syndrome [None]
  - Asthma [None]
  - Muscle spasticity [None]
  - Disease progression [None]
